FAERS Safety Report 5391832-4 (Version None)
Quarter: 2007Q3

REPORT INFORMATION
  Report Type: 
  Country: None (occurrence: None)
  Receive Date: 20070718
  Receipt Date: 20070711
  Transmission Date: 20080115
  Serious: Yes (Hospitalization, Other)
  Sender: FDA-Public Use
  Company Number: 2005-09-0174

PATIENT
  Age: 46 Year
  Sex: Female

DRUGS (2)
  1. PEG-INTRON [Suspect]
     Indication: HEPATITIS C
     Dosage: 120 MCG; SC
     Route: 058
     Dates: start: 20041008, end: 20050401
  2. REBETOL [Suspect]
     Indication: HEPATITIS C
     Dosage: 1000 MG; QD; PO
     Route: 048
     Dates: start: 20041008, end: 20050401

REACTIONS (9)
  - ANAEMIA [None]
  - DRUG HYPERSENSITIVITY [None]
  - HAEMOPTYSIS [None]
  - PNEUMONIA [None]
  - RESPIRATORY ARREST [None]
  - SCAR [None]
  - STAPHYLOCOCCAL INFECTION [None]
  - THROMBOSIS [None]
  - WHITE BLOOD CELL COUNT DECREASED [None]
